FAERS Safety Report 24761001 (Version 4)
Quarter: 2024Q4

REPORT INFORMATION
  Report Type: Spontaneous
  Country: US (occurrence: US)
  Receive Date: 20241220
  Receipt Date: 20241230
  Transmission Date: 20250115
  Serious: Yes (Hospitalization, Other)
  Sender: IPSEN BIOPHARMACEUTICALS, INC.
  Company Number: US-IPSEN Group, Research and Development-2024-25828

PATIENT
  Age: 64 Year
  Sex: Male
  Weight: 75.8 kg

DRUGS (2)
  1. TAZEMETOSTAT HYDROBROMIDE [Suspect]
     Active Substance: TAZEMETOSTAT HYDROBROMIDE
     Indication: Peripheral T-cell lymphoma unspecified
     Route: 048
     Dates: start: 20241030, end: 20241211
  2. TAZEMETOSTAT HYDROBROMIDE [Suspect]
     Active Substance: TAZEMETOSTAT HYDROBROMIDE
     Indication: Off label use
     Route: 048
     Dates: start: 20241127

REACTIONS (2)
  - Ascites [Unknown]
  - Off label use [Unknown]

NARRATIVE: CASE EVENT DATE: 20241030
